FAERS Safety Report 19083922 (Version 2)
Quarter: 2021Q2

REPORT INFORMATION
  Report Type: Spontaneous
  Country: VN (occurrence: VN)
  Receive Date: 20210401
  Receipt Date: 20210414
  Transmission Date: 20210717
  Serious: Yes (Life-Threatening, Other)
  Sender: FDA-Public Use
  Company Number: VN-ROCHE-2796257

PATIENT
  Age: 67 Year
  Sex: Male

DRUGS (11)
  1. LEVOFLOXACIN. [Concomitant]
     Active Substance: LEVOFLOXACIN
     Indication: PRODUCT USED FOR UNKNOWN INDICATION
     Dosage: UNKNOWN
     Dates: start: 20201203
  2. CLOPIDOGREL [Concomitant]
     Active Substance: CLOPIDOGREL BISULFATE
     Indication: PRODUCT USED FOR UNKNOWN INDICATION
     Route: 048
  3. IMIPENEM [Concomitant]
     Active Substance: IMIPENEM
     Indication: PRODUCT USED FOR UNKNOWN INDICATION
     Dates: start: 20201203
  4. TEICOPLANIN [Concomitant]
     Active Substance: TEICOPLANIN
     Indication: PRODUCT USED FOR UNKNOWN INDICATION
     Dosage: UNKNOWN
     Dates: start: 20201203
  5. ACTILYSE [Suspect]
     Active Substance: ALTEPLASE
     Indication: PULMONARY EMBOLISM
     Dosage: AT 8:00: 1ST VIAL, DILUTED WITH NACL 0.9% UP TO 50 MG/50 ML, BOLUS IN 2 MINS.?AT 8:15: 2ND VIAL, DIL
     Route: 065
     Dates: start: 20201203
  6. ASPIRIN [ACETYLSALICYLIC ACID] [Concomitant]
     Active Substance: ASPIRIN
     Indication: PRODUCT USED FOR UNKNOWN INDICATION
     Route: 048
  7. ATORVASTATIN [Concomitant]
     Active Substance: ATORVASTATIN
     Indication: PRODUCT USED FOR UNKNOWN INDICATION
     Route: 048
  8. DOBUTAMINE [Concomitant]
     Active Substance: DOBUTAMINE HYDROCHLORIDE
     Indication: PRODUCT USED FOR UNKNOWN INDICATION
     Dosage: AT 7H30 A.M: 150 MG DILUTED WITH NACL 0.9% UP TO 50 ML, SE 3ML/H
     Dates: start: 20201203
  9. PANTOPRAZOLE [Concomitant]
     Active Substance: PANTOPRAZOLE
     Indication: PRODUCT USED FOR UNKNOWN INDICATION
     Route: 048
  10. PERINDOPRIL ARGININE [Concomitant]
     Active Substance: PERINDOPRIL ARGININE
     Indication: PRODUCT USED FOR UNKNOWN INDICATION
     Route: 048
  11. NOREPINEPHRINE. [Concomitant]
     Active Substance: NOREPINEPHRINE
     Indication: PRODUCT USED FOR UNKNOWN INDICATION
     Dosage: AT 7H30 A.M: NORADRENALINE 4 MG *2 DILUTED WITH NACL 0.9% UP TO 50 ML, SE 5ML/H
     Dates: start: 20201203

REACTIONS (11)
  - Septic shock [Unknown]
  - Multiple organ dysfunction syndrome [Unknown]
  - Extra dose administered [Unknown]
  - Pneumonia [Unknown]
  - Acute kidney injury [Unknown]
  - Obstructive shock [Unknown]
  - Cardiac arrest [Unknown]
  - Pulmonary embolism [Unknown]
  - Coma [Unknown]
  - Sepsis [Unknown]
  - Acute hepatic failure [Unknown]

NARRATIVE: CASE EVENT DATE: 20201203
